FAERS Safety Report 8182298-X (Version None)
Quarter: 2012Q1

REPORT INFORMATION
  Report Type: 
  Country: None (occurrence: None)
  Receive Date: 20120302
  Receipt Date: 20120228
  Transmission Date: 20120608
  Serious: Yes (Other)
  Sender: FDA-Public Use
  Company Number: PHHY2012FR017445

PATIENT
  Sex: Female

DRUGS (11)
  1. FUROSEMIDE [Concomitant]
     Dosage: 40 MG, QD
     Dates: start: 20040101
  2. VALSARTAN [Concomitant]
     Dosage: 80 MG, QD
     Dates: start: 20100101
  3. FOSAVANCE [Concomitant]
     Dosage: 70 MG, QW
     Dates: start: 20050101
  4. ACETAMINOPHEN [Concomitant]
     Dosage: 3 MG, QD
     Dates: start: 20000101
  5. MONUROL [Concomitant]
     Dosage: 1 DF, QW
     Dates: start: 20100101
  6. DIPIPERON [Concomitant]
     Dosage: 4% 2 DROPS QD
     Dates: start: 20100101
  7. TRAMADOL HCL [Suspect]
     Indication: PAIN
     Dosage: 150 MG, BID
     Dates: start: 20111128
  8. CITALOPRAM HYDROBROMIDE [Suspect]
     Dosage: 30 MG, QD
     Dates: start: 20080101
  9. LAMISIL [Suspect]
     Indication: ONYCHOMYCOSIS
     Dosage: 250 MG, QD
     Dates: start: 20110901
  10. MEMANTINE HYDROCHLORIDE [Suspect]
     Dosage: 10 MG, BID
     Dates: start: 20100101
  11. PHYSIOGINE [Concomitant]
     Dosage: 2 DF, QW2
     Dates: start: 20100101

REACTIONS (4)
  - BACK PAIN [None]
  - PAIN IN EXTREMITY [None]
  - FALL [None]
  - HALLUCINATIONS, MIXED [None]
